FAERS Safety Report 17452451 (Version 13)
Quarter: 2022Q3

REPORT INFORMATION
  Report Type: Report from Study
  Country: DE (occurrence: None)
  Receive Date: 20200224
  Receipt Date: 20220715
  Transmission Date: 20221027
  Serious: Yes (Death, Hospitalization)
  Sender: FDA-Public Use
  Company Number: DE-EISAI MEDICAL RESEARCH-EC-2020-070145

PATIENT
  Age: 73 Year
  Sex: Male
  Weight: 83 kg

DRUGS (22)
  1. LENVATINIB [Suspect]
     Active Substance: LENVATINIB
     Indication: Hepatocellular carcinoma
     Dosage: STARTING DOSE AT 12MG ONCE DAILY (FLUCTUATED DOSE)
     Route: 048
     Dates: start: 20191203, end: 20200209
  2. LENVATINIB [Suspect]
     Active Substance: LENVATINIB
     Route: 048
     Dates: start: 20200210, end: 20200210
  3. PEMBROLIZUMAB [Suspect]
     Active Substance: PEMBROLIZUMAB
     Indication: Hepatocellular carcinoma
     Route: 041
     Dates: start: 20191203, end: 20200113
  4. PEMBROLIZUMAB [Suspect]
     Active Substance: PEMBROLIZUMAB
     Route: 041
     Dates: start: 20200203, end: 20200209
  5. METOPROLOL SUCCINATE [Concomitant]
     Active Substance: METOPROLOL SUCCINATE
     Dates: start: 200903
  6. PANTOPRAZOLE [Concomitant]
     Active Substance: PANTOPRAZOLE
     Dates: start: 201803
  7. ASPIRIN [Concomitant]
     Active Substance: ASPIRIN
     Dates: start: 200911
  8. EZETIMIBE [Concomitant]
     Active Substance: EZETIMIBE
     Dates: start: 201201
  9. ALLOPURINOL [Concomitant]
     Active Substance: ALLOPURINOL
     Dates: start: 200901
  10. CHOLECALCIFEROL [Concomitant]
     Active Substance: CHOLECALCIFEROL
     Dates: start: 201801
  11. LACTULOSE [Concomitant]
     Active Substance: LACTULOSE
     Dates: start: 201801
  12. PROTEIN [Concomitant]
     Active Substance: PROTEIN
     Dates: start: 201801
  13. AMLODIPINE [Concomitant]
     Active Substance: AMLODIPINE BESYLATE
     Dates: start: 20191210
  14. ALUMINUM HYDROXIDE\MAGNESIUM HYDROXIDE [Concomitant]
     Active Substance: ALUMINUM HYDROXIDE\MAGNESIUM HYDROXIDE
     Dates: start: 20191209
  15. ZOFRAN [Concomitant]
     Active Substance: ONDANSETRON HYDROCHLORIDE
     Dates: start: 201912
  16. METAMIZOLE [Concomitant]
     Active Substance: METAMIZOLE
     Dates: start: 201912
  17. SIMVASTATIN [Concomitant]
     Active Substance: SIMVASTATIN
     Dates: start: 201201
  18. NALOXONE HYDROCHLORIDE\TILIDINE HYDROCHLORIDE [Concomitant]
     Active Substance: NALOXONE HYDROCHLORIDE\TILIDINE HYDROCHLORIDE
     Dates: start: 20200120
  19. LACTULOSE [Concomitant]
     Active Substance: LACTULOSE
     Dates: start: 201801
  20. MOVICOL [Concomitant]
     Active Substance: POLYETHYLENE GLYCOL 3350\POTASSIUM CHLORIDE\SODIUM BICARBONATE\SODIUM CHLORIDE
     Dates: start: 20200114
  21. LEVOTHYROXINE SODIUM [Concomitant]
     Active Substance: LEVOTHYROXINE SODIUM
     Dates: start: 20200121
  22. LEVOTHYROXINE SODIUM [Concomitant]
     Active Substance: LEVOTHYROXINE SODIUM
     Dates: start: 20220204

REACTIONS (4)
  - Hepatic encephalopathy [Recovered/Resolved]
  - Multiple organ dysfunction syndrome [Fatal]
  - Prerenal failure [Fatal]
  - Ascites [Unknown]

NARRATIVE: CASE EVENT DATE: 20200210
